FAERS Safety Report 8280413-0 (Version None)
Quarter: 2012Q2

REPORT INFORMATION
  Report Type: 
  Country: None (occurrence: None)
  Receive Date: 20120412
  Receipt Date: 20120207
  Transmission Date: 20120825
  Serious: No
  Sender: FDA-Public Use
  Company Number: US-ASTRAZENECA-2012SE08231

PATIENT
  Sex: Female

DRUGS (4)
  1. ZEGERID [Suspect]
     Route: 065
  2. FOUR TO FIVE OTHER PRODUCTS [Suspect]
     Route: 065
  3. PRILOSEC [Suspect]
     Route: 048
  4. NEXIUM [Suspect]
     Indication: GASTROOESOPHAGEAL REFLUX DISEASE
     Route: 048

REACTIONS (3)
  - DRUG DOSE OMISSION [None]
  - DRUG INEFFECTIVE [None]
  - CHEST DISCOMFORT [None]
